FAERS Safety Report 9517090 (Version 1)
Quarter: 2013Q3

REPORT INFORMATION
  Report Type: Spontaneous
  Country: US (occurrence: US)
  Receive Date: 20130911
  Receipt Date: 20130911
  Transmission Date: 20140515
  Serious: No
  Sender: FDA-Public Use
  Company Number: US-PFIZER INC-2013260064

PATIENT
  Age: 66 Year
  Sex: Female
  Weight: 54.42 kg

DRUGS (3)
  1. LYRICA [Suspect]
     Indication: PAIN
     Dosage: 100 MG, 3X/DAY
     Dates: start: 2013, end: 201308
  2. LYRICA [Suspect]
     Indication: NERVE INJURY
  3. LYRICA [Suspect]
     Indication: HERPES ZOSTER

REACTIONS (3)
  - Dyspnoea [Unknown]
  - Joint swelling [Unknown]
  - Drug ineffective [Unknown]
